FAERS Safety Report 7713882-2 (Version None)
Quarter: 2011Q3

REPORT INFORMATION
  Report Type: 
  Country: None (occurrence: None)
  Receive Date: 20110826
  Receipt Date: 20110817
  Transmission Date: 20111222
  Serious: Yes (Hospitalization)
  Sender: FDA-Public Use
  Company Number: US-ABBOTT-11P-163-0847264-00

PATIENT
  Sex: Male

DRUGS (4)
  1. LIPITOR [Concomitant]
     Indication: PRODUCT USED FOR UNKNOWN INDICATION
     Route: 048
  2. ASPIRIN [Concomitant]
     Indication: PRODUCT USED FOR UNKNOWN INDICATION
     Dosage: PRIOR TO DOSE OF NIASPAN
     Route: 048
  3. UNKNOWN MEDICATIONS [Concomitant]
     Indication: PRODUCT USED FOR UNKNOWN INDICATION
  4. NIASPAN [Suspect]
     Indication: MYOCARDIAL INFARCTION
     Dosage: 2 TABLETS AT BEDTIME; DOSE NOT SPECIFIED
     Route: 048

REACTIONS (9)
  - MALAISE [None]
  - COLD SWEAT [None]
  - FATIGUE [None]
  - CHILLS [None]
  - WEIGHT DECREASED [None]
  - PAINFUL RESPIRATION [None]
  - BRONCHITIS [None]
  - FEELING HOT [None]
  - FLUSHING [None]
